FAERS Safety Report 7463358-5 (Version None)
Quarter: 2011Q2

REPORT INFORMATION
  Report Type: 
  Country: None (occurrence: None)
  Receive Date: 20110506
  Receipt Date: 20110429
  Transmission Date: 20111010
  Serious: Yes (Hospitalization)
  Sender: FDA-Public Use
  Company Number: A0839985A

PATIENT
  Age: 63 Year
  Sex: Male
  Weight: 90.9 kg

DRUGS (9)
  1. ASPIRIN [Concomitant]
  2. LIPITOR [Concomitant]
  3. NORVASC [Concomitant]
  4. METFORMIN [Concomitant]
  5. TOPROL-XL [Concomitant]
  6. DIOVAN HCT [Concomitant]
  7. AVANDIA [Suspect]
     Indication: DIABETES MELLITUS
     Dosage: 4MG TWICE PER DAY
     Route: 048
     Dates: end: 20070101
  8. FOLTX [Concomitant]
  9. POTASSIUM [Concomitant]

REACTIONS (5)
  - ATRIAL FIBRILLATION [None]
  - ATRIAL FLUTTER [None]
  - CONDITION AGGRAVATED [None]
  - CORONARY ARTERY OCCLUSION [None]
  - CARDIAC FAILURE CONGESTIVE [None]
